FAERS Safety Report 18058842 (Version 1)
Quarter: 2020Q3

REPORT INFORMATION
  Report Type: Spontaneous
  Country: US (occurrence: US)
  Receive Date: 20200722
  Receipt Date: 20200722
  Transmission Date: 20201103
  Serious: Yes (Other)
  Sender: FDA-Public Use
  Company Number: None

PATIENT
  Age: 61 Year
  Sex: Female
  Weight: 56.25 kg

DRUGS (6)
  1. SYNTHROID [Concomitant]
     Active Substance: LEVOTHYROXINE SODIUM
  2. CELEBREX [Concomitant]
     Active Substance: CELECOXIB
  3. ASPIRIN 81MG [Concomitant]
     Active Substance: ASPIRIN
  4. RED YEAST RICE [Concomitant]
     Active Substance: DIETARY SUPPLEMENT
  5. ZOLEDRONIC ACID (INTRAVENOUS ROUTE) [Suspect]
     Active Substance: ZOLEDRONIC ACID
     Indication: OSTEOPOROSIS
     Dosage: ?          QUANTITY:1 5 MG IV INFUSION;OTHER FREQUENCY:YEARLY;OTHER ROUTE:INTRAVENOUS?
  6. VITAMIN D [Concomitant]
     Active Substance: VITAMIN D NOS

REACTIONS (16)
  - Pain in extremity [None]
  - Sensory disturbance [None]
  - Pyrexia [None]
  - Migraine [None]
  - Bedridden [None]
  - Oedema peripheral [None]
  - Joint stiffness [None]
  - Chills [None]
  - Musculoskeletal disorder [None]
  - Peripheral swelling [None]
  - Back pain [None]
  - Asthma [None]
  - Infusion related reaction [None]
  - Grip strength decreased [None]
  - Hand fracture [None]
  - Arthralgia [None]

NARRATIVE: CASE EVENT DATE: 20200708
